FAERS Safety Report 14871181 (Version 1)
Quarter: 2018Q2

REPORT INFORMATION
  Report Type: Spontaneous
  Country: US (occurrence: US)
  Receive Date: 20180509
  Receipt Date: 20180509
  Transmission Date: 20180711
  Serious: No
  Sender: FDA-Public Use
  Company Number: US-BAYER-2018-081892

PATIENT
  Age: 74 Year
  Sex: Female
  Weight: 61 kg

DRUGS (3)
  1. CLARITIN [Suspect]
     Active Substance: LORATADINE
     Indication: SINUS DISORDER
     Dosage: 1 DF, 12 HOURS
     Route: 048
     Dates: start: 20170421
  2. OMEGA 3 [Concomitant]
     Active Substance: OMEGA-3 FATTY ACIDS
     Dosage: UNK
  3. OPTI SAFE AREDS [Concomitant]
     Dosage: UNK

REACTIONS (4)
  - Off label use [Unknown]
  - Drug effect delayed [Unknown]
  - Product use in unapproved indication [None]
  - Drug administration error [None]
